FAERS Safety Report 25253310 (Version 1)
Quarter: 2025Q2

REPORT INFORMATION
  Report Type: Spontaneous
  Country: US (occurrence: US)
  Receive Date: 20250430
  Receipt Date: 20250430
  Transmission Date: 20250716
  Serious: Yes (Other)
  Sender: TEVA
  Company Number: US-TEVA-VS-3324550

PATIENT
  Age: 67 Year
  Sex: Female

DRUGS (1)
  1. AUSTEDO XR [Suspect]
     Active Substance: DEUTETRABENAZINE
     Indication: Huntington^s disease
     Dosage: 2 TABLETS BY MOUTH ONCE DAILY
     Route: 048

REACTIONS (2)
  - Parkinson^s disease [Unknown]
  - Product use issue [Unknown]
